FAERS Safety Report 9174061 (Version 1)
Quarter: 2013Q1

REPORT INFORMATION
  Report Type: Spontaneous
  Country: US (occurrence: None)
  Receive Date: 20130313
  Receipt Date: 20130313
  Transmission Date: 20140127
  Serious: Yes (Other)
  Sender: FDA-Public Use
  Company Number: 13-01013

PATIENT
  Age: 11 Year
  Sex: Female
  Weight: 78.47 kg

DRUGS (2)
  1. ASTHMANEFRIN [Suspect]
     Indication: ASTHMA
     Dosage: 054
     Route: 055
     Dates: start: 201303
  2. ALBUTEROL SULFATE [Concomitant]

REACTIONS (3)
  - Tachycardia [None]
  - Oropharyngeal pain [None]
  - Chest pain [None]
